FAERS Safety Report 10202492 (Version 5)
Quarter: 2015Q4

REPORT INFORMATION
  Report Type: Report from Study
  Country: US (occurrence: US)
  Receive Date: 20140528
  Receipt Date: 20151228
  Transmission Date: 20160304
  Serious: Yes (Hospitalization, Disabling, Other)
  Sender: FDA-Public Use
  Company Number: US-SA-2014SA068330

PATIENT
  Age: 67 Year
  Sex: Female

DRUGS (1)
  1. AUBAGIO [Suspect]
     Active Substance: TERIFLUNOMIDE
     Indication: MULTIPLE SCLEROSIS
     Route: 048
     Dates: start: 20140209

REACTIONS (7)
  - Walking aid user [Unknown]
  - Peripheral swelling [Unknown]
  - Muscular weakness [Not Recovered/Not Resolved]
  - Hemiparesis [Recovered/Resolved]
  - Fall [Unknown]
  - Limb discomfort [Unknown]
  - Hip fracture [Unknown]
